FAERS Safety Report 6436543-9 (Version None)
Quarter: 2009Q4

REPORT INFORMATION
  Report Type: 
  Country: None (occurrence: None)
  Receive Date: 20091111
  Receipt Date: 20091102
  Transmission Date: 20100525
  Serious: Yes (Hospitalization)
  Sender: FDA-Public Use
  Company Number: US-TYCO HEALTHCARE/MALLINCKRODT-T200901929

PATIENT
  Age: 38 Year
  Sex: Female

DRUGS (1)
  1. SODIUM IODIDE I 131 [Suspect]
     Dosage: 4 DOSES, AT THREE TO FOUR MONTH INTERVALS

REACTIONS (1)
  - PSYCHOTIC DISORDER [None]
